FAERS Safety Report 11931641 (Version 1)
Quarter: 2016Q1

REPORT INFORMATION
  Report Type: Spontaneous
  Country: US (occurrence: US)
  Receive Date: 20160120
  Receipt Date: 20160120
  Transmission Date: 20160526
  Serious: No
  Sender: FDA-Public Use
  Company Number: US-INCYTE CORPORATION-2015IN005326

PATIENT
  Sex: Female

DRUGS (7)
  1. ALLOPURINOL. [Concomitant]
     Active Substance: ALLOPURINOL
  2. MISOPROSTOL. [Concomitant]
     Active Substance: MISOPROSTOL
  3. ASPIRIN. [Concomitant]
     Active Substance: ASPIRIN
  4. JAKAFI [Suspect]
     Active Substance: RUXOLITINIB
     Dosage: 10 MG, BID
     Route: 048
     Dates: start: 20140218
  5. HYZAAR [Concomitant]
     Active Substance: HYDROCHLOROTHIAZIDE\LOSARTAN POTASSIUM
  6. ETODOLAC. [Concomitant]
     Active Substance: ETODOLAC
  7. AMLODIPINE [Concomitant]
     Active Substance: AMLODIPINE BESYLATE

REACTIONS (8)
  - Dizziness [Unknown]
  - Constipation [Unknown]
  - Fatigue [Unknown]
  - Diarrhoea [Unknown]
  - Red blood cell count increased [Unknown]
  - Memory impairment [Unknown]
  - Painful defaecation [Unknown]
  - Dyspnoea [Unknown]
